FAERS Safety Report 5884478-2 (Version None)
Quarter: 2008Q3

REPORT INFORMATION
  Report Type: 
  Country: None (occurrence: None)
  Receive Date: 20080911
  Receipt Date: 20080901
  Transmission Date: 20090109
  Serious: Yes (Death, Other)
  Sender: FDA-Public Use
  Company Number: GXKR2008ES06593

PATIENT
  Age: 66 Year
  Sex: Male

DRUGS (4)
  1. METFORMIN HCL [Suspect]
     Indication: TYPE 2 DIABETES MELLITUS
     Dosage: 850 MG, BID, ORAL
     Route: 048
     Dates: end: 20080512
  2. DACORTIN (PREDNISONE) [Concomitant]
  3. INACID - SLOW RELEASE (INDOMETACIN) [Concomitant]
  4. METHOTREXATE SODIUM [Concomitant]

REACTIONS (2)
  - LACTIC ACIDOSIS [None]
  - SEPTIC SHOCK [None]
